FAERS Safety Report 5060089-6 (Version None)
Quarter: 2006Q3

REPORT INFORMATION
  Report Type: 
  Country: None (occurrence: None)
  Receive Date: 20060719
  Receipt Date: 20060511
  Transmission Date: 20061208
  Serious: Yes (Other)
  Sender: FDA-Public Use
  Company Number: 2006ADE/DICLO-008

PATIENT
  Age: 52 Year
  Sex: Male

DRUGS (5)
  1. DICLOFENAC RETARD             -RATIOPHARM 100 [Suspect]
     Indication: BACK PAIN
     Dosage: 3-5, INJECTIONS
     Dates: start: 20010301, end: 20030901
  2. OMEPRAZOLE [Concomitant]
  3. LOSARTAN          AND DIURETICS [Concomitant]
  4. ATENOLOL        AND OTHER DIURETICS [Concomitant]
  5. DIURETICS [Concomitant]

REACTIONS (1)
  - RENAL FAILURE [None]
